FAERS Safety Report 8445115-6 (Version None)
Quarter: 2012Q2

REPORT INFORMATION
  Report Type: 
  Country: None (occurrence: None)
  Receive Date: 20120618
  Receipt Date: 20120608
  Transmission Date: 20120825
  Serious: Yes (Other)
  Sender: FDA-Public Use
  Company Number: US-PFIZER INC-2010034398

PATIENT
  Sex: Male

DRUGS (3)
  1. DILANTIN [Suspect]
     Dosage: 100 MG, ONE CAPSULE PER ORAL SIX TIMES PER DAY
     Route: 048
     Dates: start: 20101004, end: 20101122
  2. DILANTIN [Suspect]
     Indication: CONVULSION
     Dosage: 100 MG, UNK
     Dates: start: 20081005
  3. DILANTIN [Suspect]
     Dosage: 100 MG, 5 CAPSULES PER ORAL EVERY OTHER DAY AND 6 CAPSULES EVERY OTHER DAY AS DIRECTED
     Route: 048
     Dates: start: 20100407

REACTIONS (1)
  - STEVENS-JOHNSON SYNDROME [None]
